FAERS Safety Report 9231922 (Version 1)
Quarter: 2013Q2

REPORT INFORMATION
  Report Type: Report from Study
  Country: US (occurrence: US)
  Receive Date: 20130415
  Receipt Date: 20130415
  Transmission Date: 20140414
  Serious: Yes (Hospitalization, Other)
  Sender: FDA-Public Use
  Company Number: US-ACTELION-A-US2013-77726

PATIENT
  Age: 73 Year
  Sex: Female

DRUGS (25)
  1. TRACLEER [Suspect]
     Indication: PULMONARY ARTERIAL HYPERTENSION
     Dosage: 125 MG, BID
     Route: 048
     Dates: start: 201109
  2. TRACLEER [Suspect]
     Dosage: 62.5 MG, BID
     Route: 048
     Dates: start: 20110831
  3. VELETRI [Suspect]
     Indication: PULMONARY ARTERIAL HYPERTENSION
     Dosage: 30 UNK, UNK
     Route: 042
  4. FLOLAN [Suspect]
  5. ADCIRCA [Concomitant]
  6. ARAVA [Concomitant]
  7. BUTALBITAL W/CAFFEINE/PARACETAMOL [Concomitant]
  8. DEXLANSOPRAZOLE [Concomitant]
  9. DIGOXIN [Concomitant]
  10. FLUTICASONE [Concomitant]
  11. HYDROCODONE W/ACETAMINOPHEN [Concomitant]
  12. LACTOBACILLUS RHAMNOSUS [Concomitant]
  13. LASIX [Concomitant]
  14. LEVOTHROID [Concomitant]
  15. LOPERAMIDE [Concomitant]
  16. LORATADIN [Concomitant]
  17. METOLAZONE [Concomitant]
  18. METOPROLOL [Concomitant]
  19. POTASSIUM CHLORIDE [Concomitant]
  20. SPIRONOLACTONE [Concomitant]
  21. DULOXETINE [Concomitant]
  22. PREDNISONE [Concomitant]
  23. DOXYCYCLINE HYCLATE [Concomitant]
  24. ENOXAPARIN [Concomitant]
  25. WARFARIN [Concomitant]

REACTIONS (9)
  - Cardiac neoplasm unspecified [Unknown]
  - Medical device complication [Unknown]
  - Renal failure [Unknown]
  - Pneumonia [Unknown]
  - Pulmonary oedema [Unknown]
  - Fluid overload [Unknown]
  - Pulmonary hypertension [Unknown]
  - Catheter removal [Unknown]
  - Presyncope [Unknown]
